FAERS Safety Report 8595687-6 (Version None)
Quarter: 2012Q3

REPORT INFORMATION
  Report Type: 
  Country: None (occurrence: None)
  Receive Date: 20120815
  Receipt Date: 20120813
  Transmission Date: 20120928
  Serious: Yes (Life-Threatening)
  Sender: FDA-Public Use
  Company Number: CA-ROCHE-1077173

PATIENT
  Sex: Male

DRUGS (4)
  1. LORAZEPAM [Concomitant]
     Indication: METASTATIC MALIGNANT MELANOMA
     Route: 065
  2. HYDROMORPHONE HYDROCHLORIDE [Concomitant]
     Route: 065
  3. ZELBORAF [Suspect]
     Indication: METASTATIC MALIGNANT MELANOMA
     Route: 048
     Dates: start: 20120101, end: 20120518
  4. ZELBORAF [Suspect]
     Dosage: DOSE REDUCED
     Route: 048
     Dates: start: 20120529, end: 20120101

REACTIONS (3)
  - BLOOD BILIRUBIN INCREASED [None]
  - HEPATOTOXICITY [None]
  - RASH [None]
